FAERS Safety Report 12138036 (Version 1)
Quarter: 2016Q1

REPORT INFORMATION
  Report Type: Spontaneous
  Country: SE (occurrence: SE)
  Receive Date: 20160302
  Receipt Date: 20160302
  Transmission Date: 20160526
  Serious: Yes (Life-Threatening, Hospitalization)
  Sender: FDA-Public Use
  Company Number: SE-JNJFOC-20160225756

PATIENT
  Age: 1 Year

DRUGS (1)
  1. FENTANYL. [Suspect]
     Active Substance: FENTANYL
     Indication: PRODUCT USED FOR UNKNOWN INDICATION
     Route: 048

REACTIONS (4)
  - Respiratory arrest [Recovered/Resolved]
  - Depressed level of consciousness [Recovered/Resolved]
  - General physical health deterioration [Recovering/Resolving]
  - Accidental exposure to product by child [Unknown]
